FAERS Safety Report 5350259-1 (Version None)
Quarter: 2007Q2

REPORT INFORMATION
  Report Type: 
  Country: None (occurrence: None)
  Receive Date: 20070521
  Receipt Date: 20070319
  Transmission Date: 20071010
  Serious: No
  Sender: FDA-Public Use
  Company Number: WAES 0703USA03750

PATIENT
  Age: 76 Year
  Sex: Female

DRUGS (3)
  1. JANUVIA [Suspect]
     Indication: BLOOD GLUCOSE
     Dosage: 50 MG/DAILY/PO
     Route: 048
     Dates: start: 20070215, end: 20070312
  2. AVAPRO [Concomitant]
  3. PRINZIDE [Concomitant]

REACTIONS (5)
  - BACK PAIN [None]
  - COUGH [None]
  - DYSPNOEA [None]
  - MUSCLE SPASMS [None]
  - RHINITIS [None]
